FAERS Safety Report 6652979-5 (Version None)
Quarter: 2010Q1

REPORT INFORMATION
  Report Type: 
  Country: None (occurrence: None)
  Receive Date: 20100326
  Receipt Date: 20100315
  Transmission Date: 20100710
  Serious: Yes (Other)
  Sender: FDA-Public Use
  Company Number: JP-PFIZER INC-2010034621

PATIENT
  Age: 59 Year
  Sex: Male
  Weight: 77.2 kg

DRUGS (11)
  1. SUNITINIB MALATE [Suspect]
     Indication: RENAL CELL CARCINOMA
     Dosage: 37.5 MG, 1X/DAY
     Route: 048
     Dates: start: 20090831
  2. AMLODIPINE [Concomitant]
     Dosage: UNK
     Route: 048
  3. INDERAL [Concomitant]
     Dosage: UNK
     Route: 048
  4. MYONAL [Concomitant]
     Dosage: UNK
     Route: 048
  5. HYPEN [Concomitant]
     Dosage: UNK
     Route: 048
  6. MUCOSTA [Concomitant]
     Dosage: UNK
     Route: 048
  7. ALLOPURINOL [Concomitant]
     Dosage: UNK
     Route: 048
  8. TAMSULOSIN HYDROCHLORIDE [Concomitant]
     Dosage: UNK
     Route: 048
  9. MILTAX [Concomitant]
     Dosage: UNK
     Route: 062
  10. CELECOXIB [Concomitant]
     Dosage: UNK
     Route: 048
  11. PARIET [Concomitant]
     Dosage: UNK
     Route: 048

REACTIONS (1)
  - RENAL IMPAIRMENT [None]
